FAERS Safety Report 5310927-4 (Version None)
Quarter: 2007Q2

REPORT INFORMATION
  Report Type: 
  Country: None (occurrence: None)
  Receive Date: 20070426
  Receipt Date: 20070426
  Transmission Date: 20071010
  Serious: Yes (Other)
  Sender: FDA-Public Use
  Company Number: None

PATIENT
  Age: 65 Year
  Sex: Male
  Weight: 63.5036 kg

DRUGS (2)
  1. SUDAFED 12 HOUR [Suspect]
     Indication: MULTIPLE ALLERGIES
     Dosage: 120MG TAB  1/DAY  ORAL
     Route: 048
     Dates: start: 20070302
  2. SUDAFED 12 HOUR [Suspect]
     Indication: SINUSITIS
     Dosage: 120MG TAB  1/DAY  ORAL
     Route: 048
     Dates: start: 20070302

REACTIONS (2)
  - FLUID INTAKE REDUCED [None]
  - INFLAMMATORY BOWEL DISEASE [None]
